FAERS Safety Report 6457428-8 (Version None)
Quarter: 2009Q4

REPORT INFORMATION
  Report Type: 
  Country: None (occurrence: None)
  Receive Date: 20091024
  Receipt Date: 20091109
  Transmission Date: 20100525
  Serious: Yes (Hospitalization)
  Sender: FDA-Public Use
  Company Number: 2009AC000086

PATIENT
  Age: 82 Year
  Sex: Female

DRUGS (26)
  1. DIGOXIN [Suspect]
     Dosage: 0.125 MG; PO
     Route: 048
     Dates: start: 20071001
  2. ASPIRIN [Concomitant]
  3. AROMASIN [Concomitant]
  4. SYNTHROID [Concomitant]
  5. COREG [Concomitant]
  6. ZETIA [Concomitant]
  7. CENTRUM SILVER [Concomitant]
  8. METANX [Concomitant]
  9. ZOCOR [Concomitant]
  10. GLYBURIDE [Concomitant]
  11. JANUVIA [Concomitant]
  12. ACTOS [Concomitant]
  13. MICARDIS [Concomitant]
  14. PROTONIX [Concomitant]
  15. LASIX [Concomitant]
  16. POTASSIUM CHLORIDE [Concomitant]
  17. ADVAIR DISKUS 100/50 [Concomitant]
  18. PRO-AIR [Concomitant]
  19. ALPRAZOLAM [Concomitant]
  20. BENZONATATE [Concomitant]
  21. LEVAQUIN [Concomitant]
  22. METHYLPRED [Concomitant]
  23. GLIMEPIRIDE [Concomitant]
  24. ZYRTEC [Concomitant]
  25. NEXIUM [Concomitant]
  26. KLONOPIN [Concomitant]

REACTIONS (29)
  - ABDOMINAL PAIN [None]
  - ANXIETY [None]
  - ASTHENIA [None]
  - ATRIAL FIBRILLATION [None]
  - BLOOD PRESSURE SYSTOLIC INCREASED [None]
  - BREAST CANCER FEMALE [None]
  - CARDIOMEGALY [None]
  - CORONARY ARTERY OCCLUSION [None]
  - DECREASED APPETITE [None]
  - DIVERTICULUM [None]
  - DIZZINESS [None]
  - DYSPNOEA EXERTIONAL [None]
  - HAEMORRHOIDS [None]
  - HEART INJURY [None]
  - HEART RATE DECREASED [None]
  - INCISION SITE COMPLICATION [None]
  - INCISION SITE PAIN [None]
  - IRON DEFICIENCY ANAEMIA [None]
  - MULTIPLE INJURIES [None]
  - OEDEMA PERIPHERAL [None]
  - OESTROGEN RECEPTOR ASSAY POSITIVE [None]
  - PALPITATIONS [None]
  - PLEURAL EFFUSION [None]
  - PLEURAL FIBROSIS [None]
  - PROGESTERONE RECEPTOR ASSAY POSITIVE [None]
  - SCAR [None]
  - SCOTOMA [None]
  - SEROMA [None]
  - VISUAL IMPAIRMENT [None]
